FAERS Safety Report 6804663-2 (Version None)
Quarter: 2010Q2

REPORT INFORMATION
  Report Type: 
  Country: None (occurrence: None)
  Receive Date: 20100628
  Receipt Date: 20070524
  Transmission Date: 20101027
  Serious: No
  Sender: FDA-Public Use
  Company Number: US-PFIZER INC-2007021291

PATIENT
  Sex: Male
  Weight: 47.6 kg

DRUGS (2)
  1. SUTENT [Suspect]
     Indication: PROSTATE CANCER
     Dates: start: 20061201
  2. DEXAMETHASONE [Suspect]

REACTIONS (2)
  - DIARRHOEA [None]
  - INCORRECT DRUG ADMINISTRATION DURATION [None]
